FAERS Safety Report 6402875-3 (Version None)
Quarter: 2009Q4

REPORT INFORMATION
  Report Type: 
  Country: None (occurrence: None)
  Receive Date: 20091016
  Receipt Date: 20091007
  Transmission Date: 20100525
  Serious: Yes (Hospitalization)
  Sender: FDA-Public Use
  Company Number: US-BIOGENIDEC-2009BI032485

PATIENT
  Sex: Female

DRUGS (1)
  1. AVONEX [Suspect]
     Indication: MULTIPLE SCLEROSIS
     Route: 030
     Dates: end: 20080601

REACTIONS (10)
  - DIPLOPIA [None]
  - IMMUNODEFICIENCY [None]
  - INCONTINENCE [None]
  - INFECTION [None]
  - PAIN [None]
  - PNEUMONIA [None]
  - PYREXIA [None]
  - SCAR [None]
  - URINARY TRACT INFECTION [None]
  - WHITE BLOOD CELL COUNT DECREASED [None]
